FAERS Safety Report 16411305 (Version 1)
Quarter: 2019Q2

REPORT INFORMATION
  Report Type: Report from Study
  Country: US (occurrence: US)
  Receive Date: 20190610
  Receipt Date: 20190610
  Transmission Date: 20190711
  Serious: Yes (Other)
  Sender: FDA-Public Use
  Company Number: US-PFIZER INC-2018045371

PATIENT
  Age: 38 Year
  Sex: Female

DRUGS (3)
  1. IBRANCE [Suspect]
     Active Substance: PALBOCICLIB
     Dosage: 75 MG, CYCLIC (14 DAYS ON AND 7 DAYS OFF)
     Route: 048
     Dates: start: 201608
  2. IBRANCE [Suspect]
     Active Substance: PALBOCICLIB
     Dosage: 100 MG, CYCLIC (FOR 5 MONTHS)
     Dates: start: 2016, end: 2016
  3. IBRANCE [Suspect]
     Active Substance: PALBOCICLIB
     Indication: BREAST CANCER FEMALE
     Dosage: 125 MG, CYCLIC (1.5 MONTHS)
     Dates: start: 201601, end: 2016

REACTIONS (5)
  - Decreased immune responsiveness [Unknown]
  - Fatigue [Unknown]
  - Product dose omission [Unknown]
  - Neuropathy peripheral [Unknown]
  - Full blood count decreased [Unknown]

NARRATIVE: CASE EVENT DATE: 2016
